FAERS Safety Report 20058154 (Version 1)
Quarter: 2021Q4

REPORT INFORMATION
  Report Type: Spontaneous
  Country: US (occurrence: US)
  Receive Date: 20211111
  Receipt Date: 20211111
  Transmission Date: 20220303
  Serious: No
  Sender: FDA-Public Use
  Company Number: US-ELI_LILLY_AND_COMPANY-US202111001373

PATIENT
  Sex: Female

DRUGS (5)
  1. TRULICITY [Suspect]
     Active Substance: DULAGLUTIDE
     Indication: Product used for unknown indication
     Dosage: UNK UNK, UNKNOWN
     Route: 065
     Dates: end: 20210814
  2. DUPIXENT [Suspect]
     Active Substance: DUPILUMAB
     Indication: Dermatitis atopic
     Dosage: 600 MG, DAILY
     Route: 058
     Dates: start: 20210521, end: 20210522
  3. DUPIXENT [Suspect]
     Active Substance: DUPILUMAB
     Dosage: 300 MG, OTHER (EVERY OTHER WEEK)
     Route: 058
     Dates: start: 20210605
  4. DUPIXENT [Suspect]
     Active Substance: DUPILUMAB
     Dosage: 2 DOSAGE FORM, UNKNOWN
     Route: 058
     Dates: start: 2021, end: 2021
  5. DUPIXENT [Suspect]
     Active Substance: DUPILUMAB
     Dosage: 300 MG, OTHER (EVERY OTHER WEEK)
     Route: 058
     Dates: start: 2021

REACTIONS (2)
  - Cough [Not Recovered/Not Resolved]
  - Nausea [Recovered/Resolved]
